FAERS Safety Report 25901158 (Version 5)
Quarter: 2025Q4

REPORT INFORMATION
  Report Type: Report from Study
  Country: US (occurrence: None)
  Receive Date: 20251009
  Receipt Date: 20251205
  Transmission Date: 20260118
  Serious: Yes (Other)
  Sender: UCB
  Company Number: US-UCBSA-2025062965

PATIENT
  Age: 4 Year

DRUGS (22)
  1. FENFLURAMINE [Suspect]
     Active Substance: FENFLURAMINE
     Indication: Lennox-Gastaut syndrome
     Dosage: 3 MILLILITER, 2X/DAY (BID)
  2. FENFLURAMINE [Suspect]
     Active Substance: FENFLURAMINE
     Dosage: 3 MILLILITER, 2X/DAY (BID)
  3. FENFLURAMINE [Suspect]
     Active Substance: FENFLURAMINE
     Dosage: 3 MILLILITER, 2X/DAY (BID)
  4. RUFINAMIDE [Suspect]
     Active Substance: RUFINAMIDE
     Indication: Seizure
     Dosage: UNK
  5. RUFINAMIDE [Suspect]
     Active Substance: RUFINAMIDE
     Dosage: DOSE INCREASED
  6. RUFINAMIDE [Suspect]
     Active Substance: RUFINAMIDE
     Dosage: 13 MILLILITER, 2X/DAY (BID)
  7. CLONIDINE [Concomitant]
     Active Substance: CLONIDINE
     Indication: Blood pressure measurement
     Dosage: 0.6 MILLIGRAM, 3X/DAY (TID)
  8. GLYCOPYRROLATE [Concomitant]
     Active Substance: GLYCOPYRROLATE
     Indication: Secretion discharge
     Dosage: 2 MILLILITER, 3X/DAY (TID)
  9. AZITHROMYCIN [Concomitant]
     Active Substance: AZITHROMYCIN
     Indication: Respiratory tract inflammation
     Dosage: 5 MILLILITER, ONCE DAILY (QD)
  10. EPIDIOLEX [Concomitant]
     Active Substance: CANNABIDIOL
     Indication: Seizure
     Dosage: 1.9 MILLILITER, 2X/DAY (BID)
  11. OMEGA-3 FATTY ACIDS [Concomitant]
     Active Substance: OMEGA-3 FATTY ACIDS
     Indication: Nervous system disorder
     Dosage: 10 MILLILITER, ONCE DAILY (QD)
  12. CLOBAZAM [Concomitant]
     Active Substance: CLOBAZAM
     Indication: Seizure
     Dosage: 6 ML FOR MORNING AND 8 ML IN EVENING
  13. PREVACID [Concomitant]
     Active Substance: LANSOPRAZOLE
     Indication: Gastrooesophageal reflux disease
     Dosage: 4 MILLILITER PRE-MEALS
  14. VITAMINS [Concomitant]
     Active Substance: VITAMINS
     Indication: Product used for unknown indication
     Dosage: 15 MILLILITER, ONCE DAILY (QD)
  15. NITROFURANTOIN [Concomitant]
     Active Substance: NITROFURANTOIN
     Indication: Urinary tract infection
     Dosage: 5 MILLILITER, ONCE DAILY (QD)
  16. MELATONIN [Concomitant]
     Active Substance: MELATONIN
     Indication: Insomnia
     Dosage: 1 MILLILITER AS NEEDED BEFORE BEDTIME
  17. FYCOMPA [Concomitant]
     Active Substance: PERAMPANEL
     Indication: Seizure
     Dosage: 12 MILLILITER, ONCE DAILY (QD)
  18. CLONAZEPAM [Concomitant]
     Active Substance: CLONAZEPAM
     Indication: Seizure
     Dosage: 0.25 MILLIGRAM AS NEEDED (MORE THAN 4 SEIZURES A DAY)
  19. DIAZEPAM [Concomitant]
     Active Substance: DIAZEPAM
     Indication: Seizure
     Dosage: 7.5 MILLILITER AS NEEDED
  20. GABAPENTIN [Concomitant]
     Active Substance: GABAPENTIN
     Indication: Muscle spasticity
     Dosage: 4 MILLILITER, 3X/DAY (TID)
  21. DUONEB [Concomitant]
     Active Substance: ALBUTEROL SULFATE\IPRATROPIUM BROMIDE
     Indication: Lung disorder
     Dosage: THRICE A DAY
  22. BUDESONIDE [Concomitant]
     Active Substance: BUDESONIDE
     Indication: Lung disorder
     Dosage: TWICE A DAY

REACTIONS (7)
  - Seizure [Recovering/Resolving]
  - Irritability [Recovered/Resolved]
  - Insomnia [Not Recovered/Not Resolved]
  - Diarrhoea [Not Recovered/Not Resolved]
  - Somnolence [Unknown]
  - Sedation [Not Recovered/Not Resolved]
  - Drug ineffective [Unknown]
